FAERS Safety Report 13033825 (Version 1)
Quarter: 2016Q4

REPORT INFORMATION
  Report Type: Spontaneous
  Country: US (occurrence: US)
  Receive Date: 20161215
  Receipt Date: 20161215
  Transmission Date: 20170207
  Serious: No
  Sender: FDA-Public Use
  Company Number: None

PATIENT
  Sex: Female

DRUGS (1)
  1. ENBREL [Suspect]
     Active Substance: ETANERCEPT
     Dosage: 50 MG ONCE A WEEK SQ
     Route: 058
     Dates: start: 20160920, end: 20161116

REACTIONS (5)
  - Vomiting [None]
  - Nausea [None]
  - Migraine [None]
  - Fatigue [None]
  - Pruritus [None]
